FAERS Safety Report 11202914 (Version 1)
Quarter: 2015Q2

REPORT INFORMATION
  Report Type: Spontaneous
  Country: US (occurrence: None)
  Receive Date: 20150618
  Receipt Date: 20150618
  Transmission Date: 20150821
  Serious: Yes (Hospitalization)
  Sender: FDA-Public Use
  Company Number: None

PATIENT
  Age: 71 Year
  Sex: Male
  Weight: 62.3 kg

DRUGS (1)
  1. DILTIAZEM [Suspect]
     Active Substance: DILTIAZEM
     Indication: ATRIAL FIBRILLATION
     Route: 048
     Dates: start: 20120723, end: 20120814

REACTIONS (8)
  - Rash [None]
  - Wheezing [None]
  - Lip swelling [None]
  - Hypotension [None]
  - Dysphonia [None]
  - Atrial fibrillation [None]
  - Angioedema [None]
  - Cough [None]

NARRATIVE: CASE EVENT DATE: 20120814
